FAERS Safety Report 4376169-4 (Version None)
Quarter: 2004Q2

REPORT INFORMATION
  Report Type: 
  Country: None (occurrence: None)
  Receive Date: 20040609
  Receipt Date: 20040609
  Transmission Date: 20050107
  Serious: Yes (Other)
  Sender: FDA-Public Use
  Company Number: None

PATIENT
  Age: 9 Year
  Sex: Female
  Weight: 34.2 kg

DRUGS (2)
  1. GAMUNEX [Suspect]
     Indication: APHERESIS
     Dosage: 25 GMS IV Q WEEK
     Route: 042
     Dates: start: 20040507
  2. GAMUNEX [Suspect]

REACTIONS (3)
  - INFUSION RELATED REACTION [None]
  - MALAISE [None]
  - NAUSEA [None]
